FAERS Safety Report 26121760 (Version 1)
Quarter: 2025Q4

REPORT INFORMATION
  Report Type: Spontaneous
  Country: EU (occurrence: EU)
  Receive Date: 20251204
  Receipt Date: 20251204
  Transmission Date: 20260118
  Serious: Yes (Other)
  Sender: GLAXOSMITHKLINE
  Company Number: None

PATIENT
  Sex: Female
  Weight: 2.8 kg

DRUGS (1)
  1. LAMICTAL [Suspect]
     Active Substance: LAMOTRIGINE
     Indication: Bipolar disorder
     Dosage: 2 DF, QD

REACTIONS (4)
  - Neonatal respiratory distress [Recovered/Resolved]
  - Foetal exposure during pregnancy [Unknown]
  - Exposure during pregnancy [Unknown]
  - Term birth [Unknown]

NARRATIVE: CASE EVENT DATE: 20250916
